FAERS Safety Report 15767288 (Version 1)
Quarter: 2018Q4

REPORT INFORMATION
  Report Type: Report from Study
  Country: US (occurrence: US)
  Receive Date: 20181227
  Receipt Date: 20181227
  Transmission Date: 20190205
  Serious: Yes (Life-Threatening, Other)
  Sender: FDA-Public Use
  Company Number: US-OTSUKA-2018_031849

PATIENT
  Sex: Female

DRUGS (2)
  1. TOLVAPTAN [Suspect]
     Active Substance: TOLVAPTAN
     Indication: CONGENITAL CYSTIC KIDNEY DISEASE
     Dosage: 45 MG, QD (UPON WAKING)
     Route: 048
     Dates: start: 20180911
  2. TOLVAPTAN [Suspect]
     Active Substance: TOLVAPTAN
     Dosage: 15 MG, QD  (8 HOURS LATER)
     Route: 048
     Dates: start: 20180911

REACTIONS (3)
  - Polyuria [Not Recovered/Not Resolved]
  - Liver injury [Unknown]
  - Thirst [Not Recovered/Not Resolved]
